FAERS Safety Report 4341319-2 (Version None)
Quarter: 2004Q1

REPORT INFORMATION
  Report Type: 
  Country: None (occurrence: None)
  Receive Date: 20040329
  Receipt Date: 20040223
  Transmission Date: 20041129
  Serious: No
  Sender: FDA-Public Use
  Company Number: 04P-163-0251047-00

PATIENT
  Sex: Male
  Weight: 92.9874 kg

DRUGS (12)
  1. HUMIRA [Suspect]
     Indication: RHEUMATOID ARTHRITIS
     Dosage: 1 IN 2 WK, SUBCUTANEOUS
     Route: 058
     Dates: start: 20040123
  2. PREDNISONE [Concomitant]
  3. FELODIPINE [Concomitant]
  4. ATENOLOL [Concomitant]
  5. EPOGEN [Concomitant]
  6. IRON [Concomitant]
  7. FOLIC ACID [Concomitant]
  8. MULTI-VITAMINS [Concomitant]
  9. COUMADIN [Concomitant]
  10. CALCIUM [Concomitant]
  11. RANITIDINE [Concomitant]
  12. METHOTREXATE [Concomitant]

REACTIONS (1)
  - INJECTION SITE PRURITUS [None]
